FAERS Safety Report 24395001 (Version 1)
Quarter: 2024Q4

REPORT INFORMATION
  Report Type: Spontaneous
  Country: ME (occurrence: ME)
  Receive Date: 20241004
  Receipt Date: 20241004
  Transmission Date: 20250115
  Serious: Yes (Hospitalization)
  Sender: ROCHE
  Company Number: ME-ROCHE-10000094978

PATIENT
  Age: 74 Year
  Sex: Male

DRUGS (1)
  1. ATEZOLIZUMAB [Suspect]
     Active Substance: ATEZOLIZUMAB
     Indication: Non-small cell lung cancer
     Route: 042
     Dates: start: 20240926

REACTIONS (9)
  - Sneezing [Unknown]
  - Choking [Unknown]
  - Dyspnoea [Unknown]
  - Cyanosis [Unknown]
  - Fear [Unknown]
  - Blood pressure decreased [Unknown]
  - Oxygen saturation decreased [Unknown]
  - Urticaria [Unknown]
  - Orthopnoea [Unknown]

NARRATIVE: CASE EVENT DATE: 20240926
